FAERS Safety Report 9238059 (Version 2)
Quarter: 2013Q2

REPORT INFORMATION
  Report Type: Spontaneous
  Country: FR (occurrence: None)
  Receive Date: 20130329
  Receipt Date: 20130409
  Transmission Date: 20140414
  Serious: Yes (Other)
  Sender: FDA-Public Use
  Company Number: 2013035190

PATIENT
  Age: 3 Year
  Sex: Male

DRUGS (4)
  1. HIZENTRA [Suspect]
     Indication: IMMUNODEFICIENCY
     Route: 058
     Dates: start: 20120308, end: 20130110
  2. EPITOMAX (TOPIRAMATE) [Concomitant]
  3. URBANYL [Concomitant]
  4. DEPAKINE (VALPROATE SODIUM) [Concomitant]

REACTIONS (1)
  - Convulsion [None]
